FAERS Safety Report 13265866 (Version 1)
Quarter: 2017Q1

REPORT INFORMATION
  Report Type: Spontaneous
  Country: KR (occurrence: KR)
  Receive Date: 20170223
  Receipt Date: 20170223
  Transmission Date: 20170428
  Serious: Yes (Death, Other)
  Sender: FDA-Public Use
  Company Number: KR-BAYER-2017-031461

PATIENT
  Age: 75 Year
  Sex: Male
  Weight: 73 kg

DRUGS (2)
  1. NEXAVAR [Suspect]
     Active Substance: SORAFENIB
     Indication: THYROID CANCER
     Dosage: 600 MG, UNK
     Route: 048
     Dates: start: 20141229, end: 201501
  2. NEXAVAR [Suspect]
     Active Substance: SORAFENIB
     Indication: THYROID CANCER
     Dosage: 400 MG, UNK
     Route: 048
     Dates: start: 20150422, end: 201504

REACTIONS (7)
  - Haemoptysis [None]
  - Diarrhoea [None]
  - Asthenia [None]
  - Hypocalcaemia [None]
  - Pain [None]
  - Atelectasis [None]
  - Death [Fatal]

NARRATIVE: CASE EVENT DATE: 201501
